FAERS Safety Report 7635069-4 (Version None)
Quarter: 2011Q3

REPORT INFORMATION
  Report Type: 
  Country: None (occurrence: None)
  Receive Date: 20110726
  Receipt Date: 20110721
  Transmission Date: 20111222
  Serious: Yes (Death, Hospitalization, Other)
  Sender: FDA-Public Use
  Company Number: US-AMGEN-USASP2011030930

PATIENT
  Sex: Female
  Weight: 71.3 kg

DRUGS (7)
  1. ETOPOSIDE [Suspect]
     Dosage: 100 MG/M2, Q3WK
     Route: 042
     Dates: start: 20110301, end: 20110526
  2. SYNTHROID [Concomitant]
     Dosage: 0.15 MG, UNK
     Dates: end: 20110602
  3. CARBOPLATIN [Suspect]
     Dosage: 650 MG, Q3WK
     Route: 042
     Dates: start: 20110301, end: 20110524
  4. AMLODIPINE [Concomitant]
     Dosage: 10 MG, UNK
     Dates: end: 20110602
  5. NEULASTA [Suspect]
     Indication: CHEMOTHERAPY
     Dosage: 6 MG, ONE TIME DOSE
     Route: 058
     Dates: start: 20110527, end: 20110527
  6. MORPHINE SULFATE [Concomitant]
     Dosage: UNK
     Dates: end: 20110502
  7. NEUPOGEN [Suspect]
     Indication: CHEMOTHERAPY
     Dosage: 480 A?G, QD
     Route: 058
     Dates: start: 20110611, end: 20110621

REACTIONS (4)
  - DRUG INEFFECTIVE [None]
  - DEATH [None]
  - NEUTROPENIA [None]
  - THROMBOCYTOPENIA [None]
